FAERS Safety Report 8286621-7 (Version None)
Quarter: 2012Q2

REPORT INFORMATION
  Report Type: 
  Country: None (occurrence: None)
  Receive Date: 20120416
  Receipt Date: 20120405
  Transmission Date: 20120825
  Serious: Yes (Hospitalization)
  Sender: FDA-Public Use
  Company Number: HU-JNJFOC-20120404399

PATIENT
  Age: 50 Year
  Sex: Female

DRUGS (6)
  1. BIPERIDEN HYDROCHLORIDE TAB [Concomitant]
     Route: 048
     Dates: start: 20110609, end: 20120406
  2. PALIPERIDONE [Suspect]
     Indication: SCHIZOPHRENIA
     Dates: start: 20111202, end: 20120404
  3. CLONAZEPAM [Concomitant]
     Indication: ANXIETY
     Route: 048
     Dates: start: 20111225
  4. PALIPERIDONE [Suspect]
     Dates: start: 20110414, end: 20111103
  5. CLONAZEPAM [Concomitant]
     Route: 048
     Dates: start: 20110525
  6. PALIPERIDONE [Suspect]
     Dates: start: 20110407

REACTIONS (1)
  - SCHIZOPHRENIA [None]
